FAERS Safety Report 25620823 (Version 1)
Quarter: 2025Q3

REPORT INFORMATION
  Report Type: Spontaneous
  Country: KR (occurrence: KR)
  Receive Date: 20250730
  Receipt Date: 20250730
  Transmission Date: 20251021
  Serious: Yes (Other)
  Sender: AMGEN
  Company Number: KR-AMGEN-KORSP2025146794

PATIENT

DRUGS (1)
  1. PROLIA [Suspect]
     Active Substance: DENOSUMAB
     Indication: Osteoporosis
     Route: 065

REACTIONS (6)
  - Spinal fracture [Unknown]
  - Periprosthetic fracture [Unknown]
  - Hip fracture [Unknown]
  - Wrist fracture [Unknown]
  - Ankle fracture [Unknown]
  - Rib fracture [Unknown]
